FAERS Safety Report 13511452 (Version 1)
Quarter: 2017Q2

REPORT INFORMATION
  Report Type: Spontaneous
  Country: US (occurrence: US)
  Receive Date: 20170503
  Receipt Date: 20170503
  Transmission Date: 20170830
  Serious: Yes (Hospitalization)
  Sender: FDA-Public Use
  Company Number: None

PATIENT
  Sex: Male

DRUGS (2)
  1. TACROLIMUS 1MG ACCORD HEALTHCARE [Suspect]
     Active Substance: TACROLIMUS
     Route: 048
     Dates: start: 20150911
  2. MYCOPHENOLATE 250MG ACCORD HEALTHCARE [Suspect]
     Active Substance: MYCOPHENOLIC ACID
     Route: 048
     Dates: start: 20160105

REACTIONS (3)
  - Pyrexia [None]
  - Chills [None]
  - Nausea [None]
